FAERS Safety Report 10471185 (Version 1)
Quarter: 2014Q3

REPORT INFORMATION
  Report Type: Report from Study
  Country: US (occurrence: US)
  Receive Date: 20140923
  Receipt Date: 20140923
  Transmission Date: 20150326
  Serious: Yes (Other)
  Sender: FDA-Public Use
  Company Number: US-ABBVIE-14K-163-1284227-00

PATIENT
  Age: 53 Year
  Sex: Female
  Weight: 72.64 kg

DRUGS (13)
  1. METHOTREXATE [Suspect]
     Active Substance: METHOTREXATE
  2. REMICADE [Suspect]
     Active Substance: INFLIXIMAB
     Indication: PRODUCT USED FOR UNKNOWN INDICATION
  3. ZYRTEC [Concomitant]
     Active Substance: CETIRIZINE HYDROCHLORIDE
     Indication: HYPERSENSITIVITY
  4. CELEBREX [Concomitant]
     Active Substance: CELECOXIB
     Indication: PRODUCT USED FOR UNKNOWN INDICATION
  5. METHOTREXATE [Suspect]
     Active Substance: METHOTREXATE
     Indication: PRODUCT USED FOR UNKNOWN INDICATION
     Dates: end: 2009
  6. METHOTREXATE [Suspect]
     Active Substance: METHOTREXATE
     Dosage: INCREASED DOSAGE FROM 7.5 MG DAILY TO 10 THEN 15 AND NOW 17.5 MG DAILY
  7. HUMIRA [Suspect]
     Active Substance: ADALIMUMAB
  8. CLARITIN-D 12 HOUR [Concomitant]
     Active Substance: LORATADINE\PSEUDOEPHEDRINE SULFATE
     Indication: HYPERSENSITIVITY
  9. SINGULAIR [Concomitant]
     Active Substance: MONTELUKAST SODIUM
     Indication: ASTHMA
  10. HUMIRA [Suspect]
     Active Substance: ADALIMUMAB
     Indication: PSORIATIC ARTHROPATHY
     Dates: start: 2007, end: 2009
  11. HUMIRA [Suspect]
     Active Substance: ADALIMUMAB
  12. ALLERGIC MEDICATION [Concomitant]
     Indication: PRODUCT USED FOR UNKNOWN INDICATION
  13. PROVENTIL [Concomitant]
     Active Substance: ALBUTEROL
     Indication: ASTHMA

REACTIONS (19)
  - Joint arthroplasty [Unknown]
  - Back pain [Unknown]
  - Drug effect decreased [Not Recovered/Not Resolved]
  - Foot deformity [Unknown]
  - Joint arthroplasty [Unknown]
  - Wedge resection toenail [Unknown]
  - Pain in extremity [Unknown]
  - Foot deformity [Unknown]
  - Oral herpes [Unknown]
  - Drug effect decreased [Unknown]
  - Hepatic failure [Unknown]
  - Wedge resection toenail [Unknown]
  - Weight decreased [Unknown]
  - Drug ineffective [Unknown]
  - Decreased appetite [Unknown]
  - Blood bilirubin abnormal [Unknown]
  - Cholelithiasis [Unknown]
  - Nausea [Unknown]
  - Biliary tract disorder [Not Recovered/Not Resolved]

NARRATIVE: CASE EVENT DATE: 2008
